FAERS Safety Report 24433814 (Version 1)
Quarter: 2024Q4

REPORT INFORMATION
  Report Type: Spontaneous
  Country: US (occurrence: US)
  Receive Date: 20241014
  Receipt Date: 20241014
  Transmission Date: 20250115
  Serious: No
  Sender: SPROUT PHARMACEUTICALS, INC.
  Company Number: US-Sprout Pharmaceuticals, Inc.-2024SP000035

PATIENT
  Age: 68 Year
  Sex: Female

DRUGS (3)
  1. ADDYI [Suspect]
     Active Substance: FLIBANSERIN
     Indication: Product used for unknown indication
     Dosage: RX # 8852932
     Route: 048
     Dates: start: 202311
  2. ADDYI [Suspect]
     Active Substance: FLIBANSERIN
     Dosage: RX # 8852932
     Route: 048
     Dates: start: 202312, end: 20240109
  3. TYLENOL [Concomitant]
     Active Substance: ACETAMINOPHEN
     Indication: Product used for unknown indication

REACTIONS (4)
  - Palpitations [Recovered/Resolved]
  - Micturition urgency [Recovered/Resolved]
  - Urine flow decreased [Recovered/Resolved]
  - Drug ineffective [Recovered/Resolved]

NARRATIVE: CASE EVENT DATE: 20231101
